FAERS Safety Report 7141302-8 (Version None)
Quarter: 2010Q4

REPORT INFORMATION
  Report Type: 
  Country: None (occurrence: None)
  Receive Date: 20101122
  Receipt Date: 20101108
  Transmission Date: 20110411
  Serious: Yes (Other)
  Sender: FDA-Public Use
  Company Number: DSA_44333_2010

PATIENT
  Age: 70 Year
  Sex: Female

DRUGS (4)
  1. DILTIAZEM HYDROCHLORIDE [Suspect]
     Indication: ATRIAL FIBRILLATION
     Dosage: (DAILY ORAL)
     Route: 048
  2. INNOHEP [Suspect]
     Indication: ATRIAL FIBRILLATION
     Dosage: (DF SUBCUTANEOUS)
     Route: 058
  3. TAXOL [Suspect]
     Indication: METASTASES TO PERITONEUM
     Dosage: (80 MG/M2, EVERY CYCLE INTRAVENOUS (NOT OTHERWISE SPECIFIED))
     Route: 042
     Dates: start: 20100701, end: 20101007
  4. HERCEPTIN [Suspect]
     Indication: METASTASES TO PERITONEUM
     Dosage: (6 MG/KG, EVERY CYCLE INTRAVENOUS (NOT OTHERWISE SPECIFIED))
     Route: 042
     Dates: start: 20100701

REACTIONS (3)
  - DYSAESTHESIA [None]
  - RASH ERYTHEMATOUS [None]
  - SKIN LESION [None]
